FAERS Safety Report 10140401 (Version 1)
Quarter: 2014Q2

REPORT INFORMATION
  Report Type: Spontaneous
  Country: US (occurrence: US)
  Receive Date: 20140429
  Receipt Date: 20140429
  Transmission Date: 20141212
  Serious: Yes (Hospitalization, Other)
  Sender: FDA-Public Use
  Company Number: US-BAXTER-2014BAX020406

PATIENT
  Sex: Female

DRUGS (4)
  1. DIANEAL LOW CALCIUM [Suspect]
     Indication: PERITONEAL DIALYSIS
     Route: 033
  2. DIANEAL LOW CALCIUM [Suspect]
     Indication: PERITONEAL DIALYSIS
     Route: 033
  3. VANCOMYCIN [Suspect]
     Indication: PERITONITIS
  4. VANCOMYCIN [Suspect]

REACTIONS (4)
  - Drug hypersensitivity [Recovered/Resolved]
  - Peritonitis [Recovered/Resolved]
  - Hypotension [Recovered/Resolved]
  - Constipation [Unknown]
